FAERS Safety Report 7050432-0 (Version None)
Quarter: 2010Q4

REPORT INFORMATION
  Report Type: 
  Country: None (occurrence: None)
  Receive Date: 20101013
  Receipt Date: 20101006
  Transmission Date: 20110411
  Serious: Yes (Other)
  Sender: FDA-Public Use
  Company Number: 2010SP053811

PATIENT
  Age: 61 Year
  Sex: Female
  Weight: 42 kg

DRUGS (2)
  1. CLARITIN (LORATADINE 5MG/PSEUDOEPHEDRINE SULFATE 120MG) (LORATADINE W/ [Suspect]
     Indication: RHINITIS ALLERGIC
     Dosage: BID;PO
     Route: 048
     Dates: start: 20100929, end: 20101003
  2. CLARITIN-D [Suspect]
     Indication: RHINITIS ALLERGIC

REACTIONS (5)
  - EXPIRED DRUG ADMINISTERED [None]
  - HEART RATE INCREASED [None]
  - PRODUCT COMMINGLING [None]
  - URINARY INCONTINENCE [None]
  - WRONG DRUG ADMINISTERED [None]
